FAERS Safety Report 8929177 (Version 1)
Quarter: 2012Q4

REPORT INFORMATION
  Report Type: 
  Country: DE (occurrence: DE)
  Receive Date: 20121127
  Receipt Date: 20121127
  Transmission Date: 20130627
  Serious: Yes (Other)
  Sender: FDA-Public Use
  Company Number: GXKR2012DE003611

PATIENT
  Sex: Male

DRUGS (1)
  1. LEUPRORELIN ACETATE [Suspect]
     Indication: PROSTATE CANCER
     Dosage: 1 DF, Q3MO
     Dates: start: 201009

REACTIONS (1)
  - Carbohydrate antigen 19-9 increased [Not Recovered/Not Resolved]
